FAERS Safety Report 9638489 (Version 1)
Quarter: 2013Q4

REPORT INFORMATION
  Report Type: Spontaneous
  Country: US (occurrence: US)
  Receive Date: 20131022
  Receipt Date: 20131022
  Transmission Date: 20140711
  Serious: Yes (Other)
  Sender: FDA-Public Use
  Company Number: US-BAYER-2013-127821

PATIENT
  Age: 31 Year
  Sex: Female

DRUGS (5)
  1. YAZ [Suspect]
  2. YASMIN [Suspect]
  3. NAPROSYN [Concomitant]
     Indication: PAIN IN EXTREMITY
  4. VERAPAMIL [Concomitant]
     Indication: MIGRAINE
  5. ZOMIG [Concomitant]
     Indication: MIGRAINE

REACTIONS (1)
  - Deep vein thrombosis [None]
